FAERS Safety Report 7412635 (Version 6)
Quarter: 2013Q4

REPORT INFORMATION
  Report Type: Spontaneous
  Country: US (occurrence: US)
  Receive Date: 20100608
  Receipt Date: 20131227
  Transmission Date: 20140711
  Serious: Yes (Hospitalization, Other)
  Sender: FDA-Public Use
  Company Number: US-BAYER-201024722NA

PATIENT
  Age: 20 Year
  Sex: Female
  Weight: 63.64 kg

DRUGS (34)
  1. DIFFERIN [Concomitant]
     Dates: start: 200807
  2. ALLEGRA [Concomitant]
     Dates: start: 200704
  3. METROGEL [Concomitant]
     Dates: start: 200809
  4. DOXYCYCLINE HYCLATE [Concomitant]
     Dates: start: 200708
  5. ZITROMAX [Concomitant]
     Dates: start: 200709
  6. NASONEX [Concomitant]
     Dates: start: 200704
  7. TRIAMCINOLONE [TRIAMCINOLONE] [Concomitant]
     Dates: start: 200704
  8. LEVAQUIN [Concomitant]
     Dates: start: 200705
  9. PROPOXYPHENE NAPSYLATE [Concomitant]
     Dates: start: 200707
  10. TRIAZOLAM [Concomitant]
     Dates: start: 200510
  11. CLINDESSE [Concomitant]
     Route: 067
     Dates: start: 200708
  12. ECONAZOLE NITRATE [Concomitant]
     Dates: start: 200708
  13. SULFONAMIDES AND TRIMETHOPRIM [Concomitant]
     Dates: start: 200712
  14. CLINDAMYCIN [Concomitant]
     Dates: start: 200704
  15. TRETINOIN [Concomitant]
     Dates: start: 200704
  16. ORPHENADRINE CITRATE [Concomitant]
     Dates: start: 200705
  17. PROMETHAZINE [Concomitant]
     Dates: start: 200510
  18. METHYLPREDNISOLONE [Concomitant]
     Dates: start: 200510
  19. VICODIN [Concomitant]
     Indication: PAIN
     Dosage: 5/500 MG Q 4-6 HOURS PRN
  20. YASMIN [Suspect]
     Indication: ORAL CONTRACEPTION
     Dosage: UNK
     Route: 048
     Dates: start: 200511, end: 2009
  21. OCELLA [Suspect]
     Indication: ORAL CONTRACEPTION
     Dosage: UNK
     Route: 048
     Dates: start: 20080521, end: 200812
  22. AMOXICILLIN [Concomitant]
     Dates: start: 200510, end: 200704
  23. Z-PAK [Concomitant]
  24. IBUPROFEN [Concomitant]
  25. TYLENOL [PARACETAMOL] [Concomitant]
  26. METRONIDAZOLE [Concomitant]
     Dates: start: 200706
  27. METRONIDAZOLE [Concomitant]
     Dates: start: 200808
  28. METRONIDAZOLE [Concomitant]
     Dates: start: 200812
  29. AZITHROMYCIN [Concomitant]
     Dates: start: 200610
  30. TRAMADOL [Concomitant]
     Dates: start: 200705
  31. TRINESSA [Concomitant]
     Dates: start: 200504
  32. HYDROCODONE [Concomitant]
     Dates: start: 200510
  33. CEPHALEXIN [Concomitant]
     Dates: start: 200710
  34. SMZ-TMP [Concomitant]
     Dates: start: 200904

REACTIONS (3)
  - Gallbladder disorder [Unknown]
  - Pain [Unknown]
  - Cholecystitis chronic [None]
